FAERS Safety Report 20633660 (Version 1)
Quarter: 2022Q1

REPORT INFORMATION
  Report Type: Spontaneous
  Country: CA (occurrence: CA)
  Receive Date: 20220324
  Receipt Date: 20220324
  Transmission Date: 20220423
  Serious: Yes (Death)
  Sender: FDA-Public Use
  Company Number: CA-009507513-2203CAN007376

PATIENT
  Age: 64 Year
  Sex: Female
  Weight: 80 kg

DRUGS (1)
  1. KEYTRUDA [Suspect]
     Active Substance: PEMBROLIZUMAB
     Indication: Endometrial cancer recurrent
     Dosage: 160 MILLIGRAM, Q3W
     Route: 042

REACTIONS (1)
  - Death [Fatal]
